FAERS Safety Report 17002918 (Version 1)
Quarter: 2019Q4

REPORT INFORMATION
  Report Type: Report from Study
  Country: ES (occurrence: ES)
  Receive Date: 20191107
  Receipt Date: 20191107
  Transmission Date: 20200122
  Serious: Yes (Hospitalization)
  Sender: FDA-Public Use
  Company Number: ES-TEVA-2019-ES-1132526

PATIENT
  Age: 81 Year
  Sex: Male

DRUGS (6)
  1. FLUOROURACILO (272A) [Suspect]
     Active Substance: FLUOROURACIL
     Indication: BREAST CANCER
     Dosage: 4 G
     Route: 042
     Dates: start: 20030923, end: 20031125
  2. METOTREXATO (418A) [Concomitant]
     Active Substance: METHOTREXATE
     Indication: BREAST CANCER
     Dosage: 273 MG
     Route: 042
     Dates: start: 20030923, end: 20031125
  3. CARVEDILOL (2431A) [Concomitant]
     Active Substance: CARVEDILOL
     Dosage: 12.5 MG
     Route: 048
     Dates: start: 20150923, end: 20180106
  4. CICLOFOSFAMIDA (120A) [Concomitant]
     Active Substance: CYCLOPHOSPHAMIDE
     Indication: BREAST CANCER
     Dosage: 4 G
     Route: 042
     Dates: start: 20030923, end: 20031125
  5. SEGURIL 20 MG/2ML SOLUCION INYECTABLE , 5 AMPOLLAS DE 2 ML [Concomitant]
     Active Substance: FUROSEMIDE
     Route: 048
     Dates: start: 20150930
  6. DOXORUBICINA (202A) [Suspect]
     Active Substance: DOXORUBICIN HYDROCHLORIDE
     Indication: BREAST CANCER
     Dosage: 512 MG
     Route: 042
     Dates: start: 20030620, end: 20030821

REACTIONS (1)
  - Congestive cardiomyopathy [Not Recovered/Not Resolved]

NARRATIVE: CASE EVENT DATE: 2015
